FAERS Safety Report 18205335 (Version 1)
Quarter: 2020Q3

REPORT INFORMATION
  Report Type: Spontaneous
  Country: CA (occurrence: CA)
  Receive Date: 20200827
  Receipt Date: 20200827
  Transmission Date: 20201103
  Serious: Yes (Hospitalization)
  Sender: FDA-Public Use
  Company Number: CA-TEVA-2020-CA-1817853

PATIENT
  Age: 63 Year
  Sex: Male

DRUGS (5)
  1. CYTARABINE INJECTION [Suspect]
     Active Substance: CYTARABINE
  2. ALLOPURINOL. [Concomitant]
     Active Substance: ALLOPURINOL
  3. ETOPOSIDE. [Suspect]
     Active Substance: ETOPOSIDE
     Route: 065
  4. NYSTATIN. [Concomitant]
     Active Substance: NYSTATIN
  5. MITOXANTRONE [Suspect]
     Active Substance: MITOXANTRONE HYDROCHLORIDE

REACTIONS (1)
  - Febrile neutropenia [Recovered/Resolved]
